FAERS Safety Report 6674331-9 (Version None)
Quarter: 2010Q2

REPORT INFORMATION
  Report Type: 
  Country: None (occurrence: None)
  Receive Date: 20100409
  Receipt Date: 20100331
  Transmission Date: 20101027
  Serious: Yes (Hospitalization)
  Sender: FDA-Public Use
  Company Number: US-JNJFOC-20080201647

PATIENT
  Sex: Female
  Weight: 101.61 kg

DRUGS (15)
  1. LEVAQUIN [Suspect]
     Indication: STAPHYLOCOCCAL INFECTION
     Route: 048
  2. LEVAQUIN [Suspect]
     Route: 048
  3. LEVAQUIN [Suspect]
     Route: 048
  4. EFFEXOR [Concomitant]
     Indication: DEPRESSION
     Route: 048
  5. PREDNISONE TAB [Concomitant]
     Indication: RHEUMATOID ARTHRITIS
     Route: 048
  6. PREDNISONE TAB [Concomitant]
     Route: 048
  7. NAMENDA [Concomitant]
     Indication: TRIGEMINAL NEURALGIA
     Route: 048
  8. PHENERGAN [Concomitant]
     Indication: NAUSEA
     Route: 048
  9. METHOTREXATE [Concomitant]
     Indication: RHEUMATOID ARTHRITIS
     Dosage: EVERY SAT AND SUN.
     Route: 048
  10. MOBIC [Concomitant]
     Indication: RHEUMATOID ARTHRITIS
     Route: 048
  11. MOBIC [Concomitant]
     Indication: SYSTEMIC LUPUS ERYTHEMATOSUS
     Route: 048
  12. HYDROXYCHLOROQUINE SULFATE [Concomitant]
     Indication: RHEUMATOID ARTHRITIS
     Route: 048
  13. HYDROXYCHLOROQUINE SULFATE [Concomitant]
     Indication: SYSTEMIC LUPUS ERYTHEMATOSUS
     Route: 048
  14. TOPROL-XL [Concomitant]
     Indication: TACHYCARDIA
     Route: 048
  15. LANTUS [Concomitant]
     Indication: DIABETES MELLITUS
     Route: 042

REACTIONS (8)
  - ARTHRALGIA [None]
  - CARDIAC DISORDER [None]
  - DIABETES MELLITUS [None]
  - DRUG INEFFECTIVE [None]
  - PAIN IN EXTREMITY [None]
  - PANCREATIC INJURY [None]
  - TENDON RUPTURE [None]
  - VOMITING [None]
